FAERS Safety Report 20668362 (Version 1)
Quarter: 2022Q2

REPORT INFORMATION
  Report Type: Report from Study
  Country: GB (occurrence: GB)
  Receive Date: 20220404
  Receipt Date: 20220404
  Transmission Date: 20220721
  Serious: Yes (Hospitalization, Other)
  Sender: FDA-Public Use
  Company Number: None

PATIENT
  Age: 45 Year
  Sex: Female

DRUGS (20)
  1. DOCETAXEL [Suspect]
     Active Substance: DOCETAXEL
     Indication: Breast cancer metastatic
     Route: 042
     Dates: start: 20160316
  2. HERCEPTIN [Suspect]
     Active Substance: TRASTUZUMAB
     Indication: Breast cancer metastatic
     Dosage: MAINTENANCE DOSE (6 MG/KG)
     Route: 042
     Dates: start: 20160406
  3. PERTUZUMAB [Suspect]
     Active Substance: PERTUZUMAB
     Indication: Breast cancer metastatic
     Dosage: LOADING DOSE
     Route: 042
     Dates: start: 20160317, end: 20160317
  4. COCODAMOL [Concomitant]
     Active Substance: ACETAMINOPHEN\CODEINE PHOSPHATE
     Indication: Bone pain
     Route: 048
  5. DENOSUMAB [Concomitant]
     Active Substance: DENOSUMAB
     Route: 042
     Dates: start: 20160727
  6. NEFOPAM [Concomitant]
     Active Substance: NEFOPAM
     Route: 048
     Dates: start: 20160907
  7. CHOLECALCIFEROL [Concomitant]
     Active Substance: CHOLECALCIFEROL
     Route: 048
     Dates: start: 20160330
  8. DEXAMETHASONE [Concomitant]
     Active Substance: DEXAMETHASONE
     Indication: Prophylaxis
     Dosage: 1 MG, QD
     Route: 048
     Dates: start: 20160416
  9. DICLOFENAC [Concomitant]
     Active Substance: DICLOFENAC
     Indication: Bone pain
     Dosage: 75 MILLIGRAM, QD
     Route: 048
  10. FILGRASTIM [Concomitant]
     Active Substance: FILGRASTIM
     Dosage: 300 UG
     Route: 058
     Dates: start: 20160317, end: 20160321
  11. CALCIUM CARBONATE\CHOLECALCIFEROL [Concomitant]
     Active Substance: CALCIUM CARBONATE\CHOLECALCIFEROL
     Indication: Prophylaxis
     Dosage: 1 DF, QD
     Route: 048
     Dates: start: 20160317
  12. ACETAMINOPHEN [Concomitant]
     Active Substance: ACETAMINOPHEN
     Indication: Bone pain
     Route: 048
  13. METOCLOPRAMIDE [Concomitant]
     Active Substance: METOCLOPRAMIDE
     Indication: Prophylaxis
     Route: 042
     Dates: start: 20160316, end: 20160316
  14. CYCLIZINE [Concomitant]
     Active Substance: CYCLIZINE
     Dosage: 50 MG,0.33 DAY
     Route: 042
     Dates: start: 20160406, end: 20160406
  15. ZOLEDRONIC ACID [Concomitant]
     Active Substance: ZOLEDRONIC ACID
     Route: 042
     Dates: start: 20160317
  16. DERMOL [Concomitant]
     Active Substance: BENZALKONIUM CHLORIDE\CHLORHEXIDINE HYDROCHLORIDE\ISOPROPYL MYRISTATE\PARAFFIN
     Indication: Dermatitis
     Route: 061
     Dates: start: 20160330
  17. VITAMIN B6 [Concomitant]
     Active Substance: PYRIDOXINE HYDROCHLORIDE
     Route: 048
     Dates: start: 20170215
  18. BUTYLSCOPOLAMINE BROMIDE [Concomitant]
     Active Substance: BUTYLSCOPOLAMINE BROMIDE
     Route: 048
     Dates: start: 20170201
  19. GABAPENTIN [Concomitant]
     Active Substance: GABAPENTIN
     Dosage: 300 MG,0.5 DAY
     Route: 048
     Dates: start: 20170215
  20. AMITRIPTYLINE [Concomitant]
     Active Substance: AMITRIPTYLINE
     Route: 048
     Dates: start: 20170215

REACTIONS (10)
  - Sepsis [Recovered/Resolved]
  - Vomiting [Recovered/Resolved]
  - Nasal discomfort [Not Recovered/Not Resolved]
  - Diarrhoea [Recovered/Resolved]
  - Acute kidney injury [Recovered/Resolved]
  - Naevus haemorrhage [Unknown]
  - Urinary tract infection [Recovered/Resolved]
  - Mouth ulceration [Recovering/Resolving]
  - Bone pain [Not Recovered/Not Resolved]
  - Dermatitis [Recovered/Resolved]

NARRATIVE: CASE EVENT DATE: 20160330
